FAERS Safety Report 15234303 (Version 1)
Quarter: 2018Q3

REPORT INFORMATION
  Report Type: Report from Study
  Country: JP (occurrence: JP)
  Receive Date: 20180803
  Receipt Date: 20180803
  Transmission Date: 20181010
  Serious: Yes (Other)
  Sender: FDA-Public Use
  Company Number: JP-ROCHE-GNE312627

PATIENT
  Age: 85 Year
  Sex: Female

DRUGS (15)
  1. RANIBIZUMAB. [Suspect]
     Active Substance: RANIBIZUMAB
     Dosage: 0.05 ML
     Route: 050
     Dates: start: 20100219
  2. CARNACULIN [Concomitant]
     Active Substance: KALLIDINOGENASE
     Indication: HYPERTENSION
  3. RANIBIZUMAB. [Suspect]
     Active Substance: RANIBIZUMAB
     Dosage: 0.05 ML
     Route: 050
     Dates: start: 20100316
  4. DIOVAN [Concomitant]
     Active Substance: VALSARTAN
     Indication: HYPERTENSION
     Route: 065
     Dates: start: 201002, end: 201006
  5. CRAVIT [Concomitant]
     Active Substance: LEVOFLOXACIN
     Indication: PRODUCT USED FOR UNKNOWN INDICATION
     Dosage: UNK
     Route: 065
     Dates: start: 201002, end: 201006
  6. MAIBASTAN [Concomitant]
     Active Substance: PRAVASTATIN SODIUM
     Indication: HYPERTENSION
     Route: 048
  7. NORVASC [Concomitant]
     Active Substance: AMLODIPINE BESYLATE
     Indication: HYPERTENSION
  8. RANIBIZUMAB. [Suspect]
     Active Substance: RANIBIZUMAB
     Dosage: 0.05 ML
     Route: 050
     Dates: start: 20091211
  9. RANIBIZUMAB. [Suspect]
     Active Substance: RANIBIZUMAB
     Dosage: 0.05 ML, UNK
     Route: 050
     Dates: start: 20100618
  10. RANIBIZUMAB. [Suspect]
     Active Substance: RANIBIZUMAB
     Dosage: 0.05 ML
     Route: 050
     Dates: start: 20100521
  11. TAKEPRON [Concomitant]
     Active Substance: LANSOPRAZOLE
     Indication: HYPERTENSION
  12. MUCOSTA [Concomitant]
     Active Substance: REBAMIPIDE
     Indication: HYPERTENSION
  13. RANIBIZUMAB. [Suspect]
     Active Substance: RANIBIZUMAB
     Indication: AGE-RELATED MACULAR DEGENERATION
     Dosage: 0.05 ML
     Route: 050
     Dates: start: 20091016
  14. RANIBIZUMAB. [Suspect]
     Active Substance: RANIBIZUMAB
     Dosage: 0.05 ML,
     Route: 050
     Dates: start: 20091113
  15. RANIBIZUMAB. [Suspect]
     Active Substance: RANIBIZUMAB
     Dosage: 0.05 ML
     Route: 050
     Dates: start: 20100119

REACTIONS (1)
  - Retinal pigment epithelial tear [Not Recovered/Not Resolved]

NARRATIVE: CASE EVENT DATE: 20100723
